FAERS Safety Report 24021252 (Version 1)
Quarter: 2024Q2

REPORT INFORMATION
  Report Type: Spontaneous
  Country: US (occurrence: US)
  Receive Date: 20240627
  Receipt Date: 20240627
  Transmission Date: 20240716
  Serious: Yes (Other)
  Sender: FDA-Public Use
  Company Number: US-BEH-2024174188

PATIENT
  Sex: Male

DRUGS (10)
  1. HIZENTRA [Suspect]
     Active Substance: HUMAN IMMUNOGLOBULIN G
     Indication: Immunodeficiency common variable
     Dosage: 25 G, QW
     Route: 058
     Dates: start: 20211106
  2. BACLOFEN [Concomitant]
     Active Substance: BACLOFEN
     Dosage: 10 MG
  3. COLACE [Concomitant]
     Active Substance: DOCUSATE SODIUM
     Dosage: 100 MG
  4. EMGALITY [Concomitant]
     Active Substance: GALCANEZUMAB-GNLM
  5. KENALOG [Concomitant]
     Active Substance: TRIAMCINOLONE ACETONIDE
  6. MS CONTIN [Concomitant]
     Active Substance: MORPHINE SULFATE
     Dosage: 15 MG
  7. VITAMINS [Concomitant]
     Active Substance: VITAMINS
  8. OXYCODONE [Concomitant]
     Active Substance: OXYCODONE\OXYCODONE HYDROCHLORIDE
  9. TIZANIDINE HYDROCHLORIDE [Concomitant]
     Active Substance: TIZANIDINE HYDROCHLORIDE
  10. UBRELVY [Concomitant]
     Active Substance: UBROGEPANT
     Dosage: 50 MG

REACTIONS (2)
  - Drug ineffective [Unknown]
  - Blood immunoglobulin G decreased [Unknown]
